FAERS Safety Report 9676058 (Version 2)
Quarter: 2013Q4

REPORT INFORMATION
  Report Type: Spontaneous
  Country: MX (occurrence: MX)
  Receive Date: 20131107
  Receipt Date: 20131206
  Transmission Date: 20140711
  Serious: Yes (Hospitalization, Other)
  Sender: FDA-Public Use
  Company Number: PHHY2013MX126560

PATIENT
  Age: 60 Year
  Sex: Male

DRUGS (3)
  1. TRILEPTAL [Suspect]
     Indication: EPILEPSY
     Dosage: 0.5 DF, Q12H
     Dates: start: 2005
  2. EXFORGE HCT [Suspect]
     Indication: HYPERTENSION
     Dosage: 1 DF, DAILY
     Route: 048
     Dates: start: 201201
  3. LOPRESOR [Suspect]
     Indication: HYPERTENSION
     Dosage: 2 UNK, DAILY

REACTIONS (7)
  - Blood potassium abnormal [Recovering/Resolving]
  - Convulsion [Recovering/Resolving]
  - Epilepsy [Recovering/Resolving]
  - Cerebral infarction [Unknown]
  - Petit mal epilepsy [Recovering/Resolving]
  - Dizziness [Recovering/Resolving]
  - Headache [Recovering/Resolving]
